FAERS Safety Report 11290381 (Version 11)
Quarter: 2020Q4

REPORT INFORMATION
  Report Type: Spontaneous
  Country: CA (occurrence: CA)
  Receive Date: 20150722
  Receipt Date: 20201126
  Transmission Date: 20210113
  Serious: Yes (Other)
  Sender: FDA-Public Use
  Company Number: CA-ROCHE-1610671

PATIENT
  Age: 75 Year
  Sex: Female

DRUGS (83)
  1. ORENCIA [Suspect]
     Active Substance: ABATACEPT
     Indication: RHEUMATOID ARTHRITIS
     Dosage: THERAPY DURATION: 730 DAYS
     Route: 042
  2. LYRICA [Suspect]
     Active Substance: PREGABALIN
     Indication: RHEUMATOID ARTHRITIS
     Route: 065
  3. FUROSEMIDE. [Concomitant]
     Active Substance: FUROSEMIDE
     Route: 065
  4. VAGIFEM [Concomitant]
     Active Substance: ESTRADIOL
     Route: 065
  5. ANAKINRA [Concomitant]
     Active Substance: ANAKINRA
  6. TRIMETHOPRIM. [Concomitant]
     Active Substance: TRIMETHOPRIM
     Route: 065
  7. PANTOPRAZOLE SODIUM ANHYDROUS [Concomitant]
     Active Substance: PANTOPRAZOLE SODIUM ANHYDROUS
     Route: 065
  8. KADIAN [Concomitant]
     Active Substance: MORPHINE SULFATE
     Route: 065
  9. PREDNISONE. [Concomitant]
     Active Substance: PREDNISONE
  10. PLAQUENIL [Suspect]
     Active Substance: HYDROXYCHLOROQUINE SULFATE
     Indication: RHEUMATOID ARTHRITIS
     Route: 065
  11. ARAVA [Suspect]
     Active Substance: LEFLUNOMIDE
     Indication: RHEUMATOID ARTHRITIS
     Route: 065
  12. XELJANZ [Suspect]
     Active Substance: TOFACITINIB CITRATE
     Indication: PRODUCT USED FOR UNKNOWN INDICATION
     Route: 065
  13. HYDROXYCHLOROQUINE SULFATE. [Suspect]
     Active Substance: HYDROXYCHLOROQUINE SULFATE
     Route: 065
  14. SIMPONI [Suspect]
     Active Substance: GOLIMUMAB
     Indication: PRODUCT USED FOR UNKNOWN INDICATION
     Route: 058
  15. FUROSEMIDE. [Concomitant]
     Active Substance: FUROSEMIDE
     Route: 065
  16. LOPERAMIDE [Concomitant]
     Active Substance: LOPERAMIDE
     Route: 065
  17. LASIX [Concomitant]
     Active Substance: FUROSEMIDE
  18. DYCLONINE HYDROCHLORIDE [Concomitant]
     Active Substance: DYCLONINE HYDROCHLORIDE
     Indication: PRODUCT USED FOR UNKNOWN INDICATION
  19. PIROXICAM. [Concomitant]
     Active Substance: PIROXICAM
  20. HUMIRA [Suspect]
     Active Substance: ADALIMUMAB
     Route: 058
  21. SODIUM AUROTHIOMALATE [Suspect]
     Active Substance: GOLD SODIUM THIOMALATE
     Indication: PRODUCT USED FOR UNKNOWN INDICATION
     Route: 030
  22. DARIFENACIN. [Concomitant]
     Active Substance: DARIFENACIN
     Indication: PRODUCT USED FOR UNKNOWN INDICATION
     Dosage: AS REQUIRED
     Route: 065
  23. PANTOPRAZOLE SODIUM. [Concomitant]
     Active Substance: PANTOPRAZOLE SODIUM
  24. VAGIFEM [Concomitant]
     Active Substance: ESTRADIOL
     Dosage: VAGINAL TABLET
     Route: 067
  25. ENBREL [Suspect]
     Active Substance: ETANERCEPT
     Indication: RHEUMATOID ARTHRITIS
     Dosage: THERAPY DURATION: 3 YEARS, SOLUTION SUBCUTANEOUS
     Route: 058
  26. HUMIRA [Suspect]
     Active Substance: ADALIMUMAB
     Indication: RHEUMATOID ARTHRITIS
     Dosage: THERAPY DURATION: 1 YEAR
     Route: 058
  27. METHOTREXATE. [Suspect]
     Active Substance: METHOTREXATE
     Dosage: THERAPY DURATION: 4015.0 DAYS
     Route: 065
  28. METHOTREXATE. [Suspect]
     Active Substance: METHOTREXATE
     Route: 067
  29. BENADRYL [Concomitant]
     Active Substance: DIPHENHYDRAMINE HYDROCHLORIDE
     Indication: PRODUCT USED FOR UNKNOWN INDICATION
     Dosage: AS REQUIRED
     Route: 065
  30. ABATACEPT [Concomitant]
     Active Substance: ABATACEPT
  31. LASIX [Concomitant]
     Active Substance: FUROSEMIDE
     Route: 065
  32. TRIAMCINOLONE ACETONIDE. [Concomitant]
     Active Substance: TRIAMCINOLONE ACETONIDE
     Route: 014
  33. HYDROMORPHONE [Concomitant]
     Active Substance: HYDROMORPHONE
     Route: 065
  34. DYCLONE [Concomitant]
     Active Substance: DYCLONINE HYDROCHLORIDE
  35. DESOXIMETASONE. [Concomitant]
     Active Substance: DESOXIMETASONE
     Route: 048
  36. DESOXIMETASONE. [Concomitant]
     Active Substance: DESOXIMETASONE
     Route: 065
  37. METHOTREXATE SODIUM. [Suspect]
     Active Substance: METHOTREXATE SODIUM
     Indication: RHEUMATOID ARTHRITIS
     Dosage: THERAPY DURATION: 9 YEARS
     Route: 065
  38. REMICADE [Suspect]
     Active Substance: INFLIXIMAB
     Route: 042
  39. SODIUM AUROTHIOMALATE [Suspect]
     Active Substance: GOLD SODIUM THIOMALATE
     Route: 065
  40. CELLCEPT [Suspect]
     Active Substance: MYCOPHENOLATE MOFETIL\MYCOPHENOLATE MOFETIL HYDROCHLORIDE
     Indication: PRODUCT USED FOR UNKNOWN INDICATION
     Route: 065
  41. SULFASALAZINE. [Suspect]
     Active Substance: SULFASALAZINE
     Indication: RHEUMATOID ARTHRITIS
     Route: 065
  42. CORTISONE [Concomitant]
     Active Substance: CORTISONE
     Indication: PRODUCT USED FOR UNKNOWN INDICATION
     Route: 030
  43. CORTISONE [Concomitant]
     Active Substance: CORTISONE
     Route: 014
  44. FUROSEMIDE. [Concomitant]
     Active Substance: FUROSEMIDE
     Route: 065
  45. LOPERAMIDE [Concomitant]
     Active Substance: LOPERAMIDE
  46. PLANTAGO OVATA [Concomitant]
     Active Substance: HERBALS\PLANTAGO OVATA LEAF
     Route: 065
  47. KINERET [Concomitant]
     Active Substance: ANAKINRA
     Route: 065
  48. DESOXIMETASONE. [Concomitant]
     Active Substance: DESOXIMETASONE
     Route: 030
  49. DIPHENHYDRAMINE. [Concomitant]
     Active Substance: DIPHENHYDRAMINE
  50. CODEINE [Concomitant]
     Active Substance: CODEINE
  51. RITUXAN [Suspect]
     Active Substance: RITUXIMAB
     Indication: PRODUCT USED FOR UNKNOWN INDICATION
     Dosage: THERAPY DURATION: 5 YEARS
     Route: 042
  52. HUMIRA [Suspect]
     Active Substance: ADALIMUMAB
     Route: 058
  53. XELJANZ [Suspect]
     Active Substance: TOFACITINIB CITRATE
     Indication: RHEUMATOID ARTHRITIS
  54. HYDROXYCHLOROQUINE [Suspect]
     Active Substance: HYDROXYCHLOROQUINE
     Indication: RHEUMATOID ARTHRITIS
     Route: 065
  55. HYDROXYCHLOROQUINE [Suspect]
     Active Substance: HYDROXYCHLOROQUINE
     Route: 065
  56. LYRICA [Suspect]
     Active Substance: PREGABALIN
     Route: 048
  57. CORTISONE [Concomitant]
     Active Substance: CORTISONE
     Route: 048
  58. LOPERAMIDE [Concomitant]
     Active Substance: LOPERAMIDE
     Route: 065
  59. NORFLEX [Concomitant]
     Active Substance: ORPHENADRINE CITRATE
  60. LEFLUNOMIDE. [Concomitant]
     Active Substance: LEFLUNOMIDE
  61. PANTOLOC [Concomitant]
     Active Substance: PANTOPRAZOLE SODIUM
     Indication: PRODUCT USED FOR UNKNOWN INDICATION
     Dosage: TABLET (ENTERIC COATED)
  62. URISPAS [Concomitant]
     Active Substance: FLAVOXATE HYDROCHLORIDE
     Route: 065
  63. PANTOPRAZOLE [Concomitant]
     Active Substance: PANTOPRAZOLE
  64. ACTEMRA [Suspect]
     Active Substance: TOCILIZUMAB
     Indication: RHEUMATOID ARTHRITIS
     Route: 042
  65. ENBREL [Suspect]
     Active Substance: ETANERCEPT
     Route: 058
  66. REMICADE [Suspect]
     Active Substance: INFLIXIMAB
     Indication: RHEUMATOID ARTHRITIS
     Dosage: THERAPY DURATION: 1 YEAR
     Route: 042
  67. HYDROXYCHLOROQUINE SULFATE. [Suspect]
     Active Substance: HYDROXYCHLOROQUINE SULFATE
     Indication: RHEUMATOID ARTHRITIS
     Route: 065
  68. METHOTREXATE. [Suspect]
     Active Substance: METHOTREXATE
     Indication: RHEUMATOID ARTHRITIS
     Dosage: 11.0 YEARS
     Route: 065
  69. METHOTREXATE. [Suspect]
     Active Substance: METHOTREXATE
     Route: 065
  70. OMNARIS [Concomitant]
     Active Substance: CICLESONIDE
     Dosage: SPRAY, METERED DOSE
  71. ENABLEX [Concomitant]
     Active Substance: DARIFENACIN HYDROBROMIDE
     Indication: PRODUCT USED FOR UNKNOWN INDICATION
     Dosage: TABLET (EXTENDED RELEASE)
     Route: 065
  72. OXYNEO [Concomitant]
     Active Substance: OXYCODONE
     Route: 065
  73. ORPHENADRINE HYDROCHLORIDE [Concomitant]
     Active Substance: ORPHENADRINE HYDROCHLORIDE
     Dosage: 1.0 DOSAGE FORMS
     Route: 065
  74. MORPHINE SULFATE. [Concomitant]
     Active Substance: MORPHINE SULFATE
     Route: 065
  75. DARIFENACIN HYDROBROMIDE. [Concomitant]
     Active Substance: DARIFENACIN HYDROBROMIDE
     Route: 065
  76. ACETAMINOPHEN. [Concomitant]
     Active Substance: ACETAMINOPHEN
     Route: 065
  77. ENBREL [Suspect]
     Active Substance: ETANERCEPT
     Dosage: THERAPY DURATION: 3 YEARS
     Route: 058
  78. HYDROXYCHLOROQUINE SULFATE. [Suspect]
     Active Substance: HYDROXYCHLOROQUINE SULFATE
     Indication: PRODUCT USED FOR UNKNOWN INDICATION
     Route: 065
  79. ATIVAN [Concomitant]
     Active Substance: LORAZEPAM
  80. SYNTHROID [Concomitant]
     Active Substance: LEVOTHYROXINE SODIUM
  81. ENABLEX [Concomitant]
     Active Substance: DARIFENACIN HYDROBROMIDE
     Route: 065
  82. RESTASIS [Concomitant]
     Active Substance: CYCLOSPORINE
     Route: 065
  83. KENALOG [Concomitant]
     Active Substance: TRIAMCINOLONE ACETONIDE
     Route: 014

REACTIONS (37)
  - Fibromyalgia [Not Recovered/Not Resolved]
  - Leukopenia [Not Recovered/Not Resolved]
  - Rheumatoid arthritis [Not Recovered/Not Resolved]
  - Sinusitis [Unknown]
  - Blood cholesterol increased [Not Recovered/Not Resolved]
  - C-reactive protein abnormal [Not Recovered/Not Resolved]
  - Stomatitis [Not Recovered/Not Resolved]
  - Liver function test abnormal [Not Recovered/Not Resolved]
  - Drug hypersensitivity [Not Recovered/Not Resolved]
  - Drug ineffective [Unknown]
  - Contraindicated product administered [Unknown]
  - Arthralgia [Not Recovered/Not Resolved]
  - Synovitis [Not Recovered/Not Resolved]
  - Infection [Not Recovered/Not Resolved]
  - Joint swelling [Not Recovered/Not Resolved]
  - Soft tissue disorder [Not Recovered/Not Resolved]
  - Psoriatic arthropathy [Unknown]
  - Rash [Unknown]
  - Drug intolerance [Not Recovered/Not Resolved]
  - Condition aggravated [Not Recovered/Not Resolved]
  - Therapeutic product effect incomplete [Not Recovered/Not Resolved]
  - C-reactive protein increased [Not Recovered/Not Resolved]
  - Sciatica [Unknown]
  - Oral pain [Not Recovered/Not Resolved]
  - Product use issue [Unknown]
  - Soft tissue swelling [Not Recovered/Not Resolved]
  - Arthritis [Not Recovered/Not Resolved]
  - Swelling [Not Recovered/Not Resolved]
  - Red blood cell sedimentation rate increased [Unknown]
  - Herpes zoster [Not Recovered/Not Resolved]
  - Tenderness [Not Recovered/Not Resolved]
  - Treatment failure [Unknown]
  - Peripheral swelling [Not Recovered/Not Resolved]
  - Pneumonia viral [Not Recovered/Not Resolved]
  - Anaemia [Not Recovered/Not Resolved]
  - Therapeutic product effect incomplete [Unknown]
  - Off label use [Unknown]
